FAERS Safety Report 12169235 (Version 2)
Quarter: 2016Q1

REPORT INFORMATION
  Report Type: Spontaneous
  Country: FR (occurrence: FR)
  Receive Date: 20160310
  Receipt Date: 20160310
  Transmission Date: 20160526
  Serious: Yes (Hospitalization)
  Sender: FDA-Public Use
  Company Number: FR-SA-2016SA042147

PATIENT
  Age: 49 Year
  Sex: Female

DRUGS (9)
  1. SUSTIVA [Concomitant]
     Active Substance: EFAVIRENZ
  2. TIXTAR [Concomitant]
     Active Substance: RIFAXIMIN
  3. KALEORID [Concomitant]
     Active Substance: POTASSIUM CHLORIDE
     Dosage: 4/DAY
  4. KIVEXA [Concomitant]
     Active Substance: ABACAVIR SULFATE\LAMIVUDINE
  5. LACTULOSE. [Suspect]
     Active Substance: LACTULOSE
     Indication: ENCEPHALOPATHY
     Route: 048
     Dates: end: 20160208
  6. ALDACTONE [Concomitant]
     Active Substance: SPIRONOLACTONE
  7. LASILIX FAIBLE [Suspect]
     Active Substance: FUROSEMIDE
     Indication: ASCITES
     Route: 048
     Dates: start: 201106, end: 20160208
  8. ATARAX [Concomitant]
     Active Substance: HYDROXYZINE\HYDROXYZINE HYDROCHLORIDE
  9. UVEDOSE [Concomitant]
     Active Substance: CHOLECALCIFEROL

REACTIONS (3)
  - Diarrhoea [Recovered/Resolved]
  - Hypokalaemia [Recovered/Resolved]
  - Electrocardiogram abnormal [Recovered/Resolved]

NARRATIVE: CASE EVENT DATE: 20160203
